FAERS Safety Report 4951939-X (Version None)
Quarter: 2006Q1

REPORT INFORMATION
  Report Type: 
  Country: None (occurrence: None)
  Receive Date: 20060320
  Receipt Date: 20060307
  Transmission Date: 20060701
  Serious: Yes (Hospitalization)
  Sender: FDA-Public Use
  Company Number: 2006022624

PATIENT
  Age: 73 Year
  Sex: Female

DRUGS (9)
  1. EXEMESTANE [Suspect]
     Indication: BREAST CANCER
     Dosage: 25 MG (25 MG, 1 IN 1 D), ORAL
     Route: 048
     Dates: start: 20040623, end: 20050825
  2. EXEMESTANE [Suspect]
     Indication: BREAST CANCER
     Dosage: 25 MG (25 MG, 1 IN 1 D), ORAL
     Route: 048
     Dates: start: 20051109
  3. ANTIHYPERTENSIVES (ANTIHYPERTENSIVES) [Concomitant]
  4. EMCORETIC (BISOPROLOL FUMARATE, HYDROCHLOROTHIAZIDE) [Concomitant]
  5. ASPIRIN [Concomitant]
  6. CORVATARD (MOLSIDOMINE) [Concomitant]
  7. PRAVASTATIN [Concomitant]
  8. OMEPRAZOLE [Concomitant]
  9. ZANIDIP (LERCANIDIPINE HYDROCHLORIDE) [Concomitant]

REACTIONS (23)
  - AORTIC ARTERIOSCLEROSIS [None]
  - APHASIA [None]
  - APRAXIA [None]
  - CARDIOMEGALY [None]
  - CAROTID ARTERY OCCLUSION [None]
  - CEREBRAL ISCHAEMIA [None]
  - CEREBROVASCULAR ACCIDENT [None]
  - COGNITIVE DISORDER [None]
  - CONDITION AGGRAVATED [None]
  - DIABETES MELLITUS NON-INSULIN-DEPENDENT [None]
  - DILATATION ATRIAL [None]
  - DIZZINESS [None]
  - EYE MOVEMENT DISORDER [None]
  - HEMIPLEGIA [None]
  - HYPERTENSION [None]
  - HYPOKALAEMIA [None]
  - HYPOTENSION [None]
  - NAUSEA [None]
  - NEPHROPATHY [None]
  - RENAL IMPAIRMENT [None]
  - UNRESPONSIVE TO PAIN STIMULI [None]
  - URINARY INCONTINENCE [None]
  - VOMITING [None]
